FAERS Safety Report 4459892-2 (Version None)
Quarter: 2004Q3

REPORT INFORMATION
  Report Type: 
  Country: None (occurrence: None)
  Receive Date: 20040928
  Receipt Date: 20030825
  Transmission Date: 20050211
  Serious: No
  Sender: FDA-Public Use
  Company Number: US-GLAXOSMITHKLINE-A0423400A

PATIENT
  Age: 62 Year
  Sex: Female

DRUGS (4)
  1. SEREVENT [Suspect]
     Indication: ASTHMA
     Dosage: 1PUFF TWICE PER DAY
     Route: 055
     Dates: start: 20030823, end: 20030823
  2. FLOVENT [Concomitant]
  3. OTC VITAMINS [Concomitant]
  4. ADVIL [Concomitant]

REACTIONS (2)
  - BRONCHOSPASM [None]
  - COUGH [None]
